FAERS Safety Report 9964385 (Version 2)
Quarter: 2014Q2

REPORT INFORMATION
  Report Type: Report from Study
  Country: JP (occurrence: JP)
  Receive Date: 20140305
  Receipt Date: 20140402
  Transmission Date: 20141212
  Serious: No
  Sender: FDA-Public Use
  Company Number: JP-GLAXOSMITHKLINE-B0973408A

PATIENT
  Age: 75 Year
  Sex: Male

DRUGS (7)
  1. REQUIP [Suspect]
     Indication: PARKINSON^S DISEASE
     Dosage: 2MG PER DAY
     Route: 048
     Dates: start: 20130702, end: 20130711
  2. REQUIP [Suspect]
     Indication: PARKINSON^S DISEASE
     Dosage: 4MG PER DAY
     Route: 048
     Dates: start: 20130712, end: 20130807
  3. REQUIP [Suspect]
     Indication: PARKINSON^S DISEASE
     Dosage: 2MG PER DAY
     Route: 048
     Dates: start: 20130808
  4. NEODOPASTON [Concomitant]
     Indication: PARKINSON^S DISEASE
     Dosage: 100MG THREE TIMES PER DAY
     Route: 048
     Dates: start: 20131114
  5. MAGLAX [Concomitant]
     Route: 048
     Dates: start: 20130329
  6. ARICEPT D [Concomitant]
     Route: 048
     Dates: start: 20130427
  7. DEPAS [Concomitant]
     Route: 048
     Dates: start: 20130427

REACTIONS (2)
  - Somnolence [Recovered/Resolved]
  - Hallucination [Recovered/Resolved]
